FAERS Safety Report 23145549 (Version 2)
Quarter: 2023Q4

REPORT INFORMATION
  Report Type: Spontaneous
  Country: TW (occurrence: TW)
  Receive Date: 20231103
  Receipt Date: 20231109
  Transmission Date: 20240110
  Serious: Yes (Hospitalization)
  Sender: FDA-Public Use
  Company Number: TW-CHUGAI-2023038364

PATIENT
  Age: 73 Year
  Sex: Male
  Weight: 55 kg

DRUGS (5)
  1. ACTEMRA [Suspect]
     Active Substance: TOCILIZUMAB
     Indication: Rheumatoid arthritis
     Route: 058
     Dates: start: 20220413, end: 20230924
  2. PREDNISOLONE [Concomitant]
     Active Substance: PREDNISOLONE
     Indication: Rheumatoid arthritis
     Dosage: 5 MILLIGRAM, TID
     Dates: start: 20230630
  3. TRAMCET [Concomitant]
     Active Substance: ACETAMINOPHEN\TRAMADOL
     Indication: Rheumatoid arthritis
     Dates: start: 20211208
  4. SILODOSIN [Concomitant]
     Active Substance: SILODOSIN
     Indication: Prostatitis
     Dates: start: 20221125
  5. PLAQUENIL [Concomitant]
     Active Substance: HYDROXYCHLOROQUINE SULFATE

REACTIONS (3)
  - Testicular cyst [Recovering/Resolving]
  - Scrotal abscess [Recovering/Resolving]
  - Klebsiella infection [Recovering/Resolving]

NARRATIVE: CASE EVENT DATE: 20230903
